FAERS Safety Report 11883451 (Version 1)
Quarter: 2015Q4

REPORT INFORMATION
  Report Type: Spontaneous
  Country: NL (occurrence: NL)
  Receive Date: 20151231
  Receipt Date: 20151231
  Transmission Date: 20160305
  Serious: Yes (Other)
  Sender: FDA-Public Use
  Company Number: NL-ALLERGAN-1527162US

PATIENT
  Age: 55 Year
  Sex: Male

DRUGS (4)
  1. PILOCARPINE. [Concomitant]
     Active Substance: PILOCARPINE
     Indication: GLAUCOMA
  2. TRUSOPT [Concomitant]
     Active Substance: DORZOLAMIDE HYDROCHLORIDE
     Indication: GLAUCOMA
  3. ALPHAGAN P [Suspect]
     Active Substance: BRIMONIDINE TARTRATE
     Indication: GLAUCOMA
     Dosage: UNK
     Route: 047
     Dates: start: 2013
  4. TRAVATAN [Concomitant]
     Active Substance: TRAVOPROST
     Indication: GLAUCOMA

REACTIONS (2)
  - Retinal detachment [Unknown]
  - Vitreous floaters [Unknown]

NARRATIVE: CASE EVENT DATE: 20130812
